FAERS Safety Report 8061981-0 (Version None)
Quarter: 2012Q1

REPORT INFORMATION
  Report Type: 
  Country: None (occurrence: None)
  Receive Date: 20120123
  Receipt Date: 20120111
  Transmission Date: 20120608
  Serious: Yes (Hospitalization, Other)
  Sender: FDA-Public Use
  Company Number: US-BAYER-2011-107354

PATIENT
  Age: 22 Year
  Sex: Female
  Weight: 81.633 kg

DRUGS (10)
  1. HYDROCODONE BITARTRATE AND ACETAMINOPHEN [Concomitant]
  2. VALIUM [Concomitant]
     Route: 042
  3. ORTHO TRI-CYCLEN [Concomitant]
  4. DIAZEPAM [Concomitant]
     Dosage: 5 MG, UNK
     Route: 048
     Dates: start: 20040206
  5. VICODIN [Concomitant]
     Dosage: 500 MG, UNK
     Route: 048
     Dates: start: 20040206
  6. TORADOL [Concomitant]
  7. PROMETHAZINE [Concomitant]
     Dosage: 25 MG, TID
     Route: 048
     Dates: start: 20040208
  8. IBUPROFEN [Concomitant]
  9. ALIMENTARY TRACT AND METABOLISM [Concomitant]
  10. YASMIN [Suspect]
     Indication: CONTRACEPTION
     Dosage: UNK
     Dates: start: 20020101, end: 20040101

REACTIONS (4)
  - MENTAL DISORDER [None]
  - INJURY [None]
  - GALLBLADDER INJURY [None]
  - CHOLECYSTITIS ACUTE [None]
